FAERS Safety Report 22270286 (Version 11)
Quarter: 2024Q2

REPORT INFORMATION
  Report Type: Spontaneous
  Country: US (occurrence: US)
  Receive Date: 20230501
  Receipt Date: 20240402
  Transmission Date: 20240716
  Serious: No
  Sender: FDA-Public Use
  Company Number: US-PFIZER INC-PV202300005662

PATIENT
  Age: 90 Year
  Sex: Female

DRUGS (6)
  1. RETACRIT [Suspect]
     Active Substance: EPOETIN ALFA-EPBX
     Indication: Haemoglobin decreased
     Dosage: INJECT 1 ML (40,000 UNITS TOTAL) UNDER THE SKIN ONCE A WEEK
     Route: 058
  2. RETACRIT [Suspect]
     Active Substance: EPOETIN ALFA-EPBX
     Indication: Anaemia
     Dosage: 10000 IU
  3. RETACRIT [Suspect]
     Active Substance: EPOETIN ALFA-EPBX
     Indication: Nephrogenic anaemia
     Dosage: INJECT 2 ML (20,000 UNITS TOTAL) UNDER THE SKIN ONCE A WEEK
     Route: 058
  4. RETACRIT [Suspect]
     Active Substance: EPOETIN ALFA-EPBX
     Dosage: INJECT 2.5 ML (50,000 UNITS TOTAL) UNDER THE SKIN
  5. RETACRIT [Suspect]
     Active Substance: EPOETIN ALFA-EPBX
     Dosage: 40000 IU/ML
  6. RETACRIT [Suspect]
     Active Substance: EPOETIN ALFA-EPBX
     Dosage: INJECT 6 ML (60,000 UNITS TOTAL) ONCE A WEEK
     Route: 058

REACTIONS (9)
  - Intentional product misuse [Unknown]
  - Underdose [Unknown]
  - Injection site pain [Unknown]
  - Injection site bruising [Unknown]
  - Sensitive skin [Unknown]
  - Red blood cell count decreased [Unknown]
  - Platelet count decreased [Unknown]
  - Haemoglobin decreased [Unknown]
  - Product prescribing issue [Unknown]

NARRATIVE: CASE EVENT DATE: 20231101
